FAERS Safety Report 12527267 (Version 1)
Quarter: 2016Q3

REPORT INFORMATION
  Report Type: Report from Study
  Country: JP (occurrence: JP)
  Receive Date: 20160705
  Receipt Date: 20160705
  Transmission Date: 20161109
  Serious: Yes (Hospitalization, Disabling, Other)
  Sender: FDA-Public Use
  Company Number: JP-VIIV HEALTHCARE LIMITED-JP2016JPN092059

PATIENT
  Sex: Male

DRUGS (15)
  1. DOLUTEGRAVIR [Suspect]
     Active Substance: DOLUTEGRAVIR
     Indication: HIV INFECTION
     Dosage: 100 MG, UNK
     Route: 048
     Dates: start: 20150428, end: 20151201
  2. ISCOTIN (JAPAN) [Concomitant]
     Indication: TUBERCULOMA OF CENTRAL NERVOUS SYSTEM
  3. PYDOXAL [Concomitant]
     Active Substance: PYRIDOXAL
     Indication: VITAMIN SUPPLEMENTATION
     Dosage: 30 MG, QD
     Dates: start: 20150302, end: 20151201
  4. SILECE [Concomitant]
     Active Substance: FLUNITRAZEPAM
     Indication: INSOMNIA
     Dosage: 1 G, QD
     Dates: start: 20150420
  5. DOLUTEGRAVIR [Suspect]
     Active Substance: DOLUTEGRAVIR
     Dosage: 50 MG, UNK
     Route: 048
     Dates: start: 20151202
  6. ISCOTIN (JAPAN) [Concomitant]
     Indication: DISSEMINATED TUBERCULOSIS
     Dosage: 300 MG, QD
     Dates: start: 20150302, end: 20151201
  7. PYRAMIDE [Concomitant]
     Active Substance: PYRAZINAMIDE
     Indication: DISSEMINATED TUBERCULOSIS
     Dosage: 1.5 G, QD
     Dates: start: 20150302, end: 20150428
  8. PYRAMIDE [Concomitant]
     Active Substance: PYRAZINAMIDE
     Indication: TUBERCULOMA OF CENTRAL NERVOUS SYSTEM
  9. FEXOFENADINE HYDROCHLORIDE OD TABLET [Concomitant]
     Indication: RASH
     Dosage: 60 MG, BID
     Dates: start: 20150420
  10. TRUVADA [Suspect]
     Active Substance: EMTRICITABINE\TENOFOVIR DISOPROXIL FUMARATE
     Indication: HIV INFECTION
     Dosage: 1 DF, UNK
     Route: 048
     Dates: start: 20150428
  11. BAKTAR [Concomitant]
     Active Substance: SULFAMETHOXAZOLE\TRIMETHOPRIM
     Indication: ANTIFUNGAL PROPHYLAXIS
     Dosage: 1 DF, QD
     Dates: start: 20150420
  12. RIFAMPICIN [Concomitant]
     Active Substance: RIFAMPIN
     Indication: TUBERCULOMA OF CENTRAL NERVOUS SYSTEM
  13. EBUTOL (JAPAN) [Concomitant]
     Indication: DISSEMINATED TUBERCULOSIS
     Dosage: 1000 MG, QD
     Dates: start: 20150302, end: 20151201
  14. EBUTOL (JAPAN) [Concomitant]
     Indication: TUBERCULOMA OF CENTRAL NERVOUS SYSTEM
  15. RIFAMPICIN [Concomitant]
     Active Substance: RIFAMPIN
     Indication: DISSEMINATED TUBERCULOSIS
     Dosage: 600 MG, QD
     Dates: start: 20150302

REACTIONS (4)
  - Tuberculoma of central nervous system [Recovering/Resolving]
  - Immune reconstitution inflammatory syndrome associated tuberculosis [Recovering/Resolving]
  - Blood triglycerides increased [Not Recovered/Not Resolved]
  - Gamma-glutamyltransferase increased [Not Recovered/Not Resolved]

NARRATIVE: CASE EVENT DATE: 20150511
